FAERS Safety Report 5734782-3 (Version None)
Quarter: 2008Q2

REPORT INFORMATION
  Report Type: 
  Country: None (occurrence: None)
  Receive Date: 20080508
  Receipt Date: 20080428
  Transmission Date: 20081010
  Serious: Yes (Hospitalization)
  Sender: FDA-Public Use
  Company Number: 233263J08USA

PATIENT
  Age: 53 Year
  Sex: Male
  Weight: 72.5755 kg

DRUGS (1)
  1. REBIF [Suspect]
     Indication: MULTIPLE SCLEROSIS
     Dosage: 44 MCG, 3 IN 1 WEEKS, SUBCUTANEOUS
     Route: 058
     Dates: start: 20070619

REACTIONS (4)
  - APPENDICITIS PERFORATED [None]
  - FATIGUE [None]
  - INJECTION SITE BRUISING [None]
  - MUSCULAR WEAKNESS [None]
